FAERS Safety Report 5720211-2 (Version None)
Quarter: 2008Q2

REPORT INFORMATION
  Report Type: 
  Country: None (occurrence: None)
  Receive Date: 20080423
  Receipt Date: 20070920
  Transmission Date: 20081010
  Serious: Yes (Other)
  Sender: FDA-Public Use
  Company Number: 244667

PATIENT
  Age: 52 Year
  Sex: Female

DRUGS (2)
  1. AVASTIN [Suspect]
     Indication: BREAST CANCER METASTATIC
  2. ABRAXANE [Concomitant]

REACTIONS (1)
  - CARDIAC FAILURE CONGESTIVE [None]
